FAERS Safety Report 13861289 (Version 1)
Quarter: 2017Q3

REPORT INFORMATION
  Report Type: Report from Study
  Country: US (occurrence: US)
  Receive Date: 20170811
  Receipt Date: 20170811
  Transmission Date: 20171127
  Serious: Yes (Other)
  Sender: FDA-Public Use
  Company Number: US-ASTRAZENECA-2017SE75082

PATIENT
  Age: 58 Year
  Sex: Female

DRUGS (21)
  1. AZD1775 [Suspect]
     Active Substance: INVESTIGATIONAL PRODUCT
     Indication: APPENDIX CANCER
     Dosage: 150 MG, BID
     Route: 048
     Dates: start: 20161128, end: 20170717
  2. AMITRIPTYLINE [Concomitant]
     Active Substance: AMITRIPTYLINE
     Dosage: 25 MG, TID
     Route: 048
     Dates: start: 20170612
  3. NAPROXEN. [Concomitant]
     Active Substance: NAPROXEN
     Dosage: 220 MG
     Route: 048
     Dates: start: 20170608
  4. OLAPARIB. [Suspect]
     Active Substance: OLAPARIB
     Indication: APPENDIX CANCER
     Dosage: 200 MG, BID
     Route: 048
     Dates: start: 20161121, end: 20170719
  5. PROCHLORPERAZINE. [Concomitant]
     Active Substance: PROCHLORPERAZINE
     Dosage: 10 MG
     Route: 048
     Dates: start: 20161201
  6. DIGESTIVE ENZYME [Concomitant]
     Active Substance: UNSPECIFIED INGREDIENT
     Dosage: 1 UNK, BID
     Route: 048
     Dates: start: 20151111
  7. FUROSEMIDE. [Concomitant]
     Active Substance: FUROSEMIDE
     Dosage: 1 UNK, BID
     Route: 048
     Dates: start: 20170428
  8. MULTIVITAMIN [Concomitant]
     Active Substance: VITAMINS
     Dosage: 1 UNK, BID
     Route: 048
     Dates: start: 20151111
  9. LOPERAMIDE [Concomitant]
     Active Substance: LOPERAMIDE
     Dosage: 2 MG, UNK
     Route: 048
     Dates: start: 20161201
  10. FILGRASTIM [Concomitant]
     Active Substance: FILGRASTIM
     Dosage: 480 MCG, UNK
     Dates: start: 20170630, end: 20170702
  11. HYDROMORPHONE [Concomitant]
     Active Substance: HYDROMORPHONE
     Dosage: 1 UNK, UNK
     Route: 048
     Dates: start: 20170612
  12. MILK THISTLE [Concomitant]
     Active Substance: MILK THISTLE
     Dosage: 175 MG
     Dates: start: 20170608
  13. SPIRONOLACTONE. [Concomitant]
     Active Substance: SPIRONOLACTONE
     Dosage: 50 MG
     Route: 048
     Dates: start: 20170519
  14. METHOCARBAMOL. [Concomitant]
     Active Substance: METHOCARBAMOL
     Dosage: 500 UNK, QD
     Route: 048
     Dates: start: 20170612
  15. TRAMADOL. [Concomitant]
     Active Substance: TRAMADOL
     Dosage: 50 MG, QD
     Route: 048
     Dates: start: 20170224
  16. AZD1775 [Suspect]
     Active Substance: INVESTIGATIONAL PRODUCT
     Indication: NEOPLASM
     Dosage: 150 MG, BID
     Route: 048
     Dates: start: 20161128, end: 20170717
  17. OLAPARIB. [Suspect]
     Active Substance: OLAPARIB
     Indication: NEOPLASM
     Dosage: 200 MG, BID
     Route: 048
     Dates: start: 20161121, end: 20170719
  18. PYRIDOXINE [Concomitant]
     Active Substance: PYRIDOXINE
     Dosage: 100 MG, BID
     Route: 048
     Dates: start: 20151111
  19. TRETINOIN. [Concomitant]
     Active Substance: TRETINOIN
     Dosage: 0.025 %,
     Dates: start: 20170106
  20. TRIAMCINOLONE [Concomitant]
     Active Substance: TRIAMCINOLONE
     Dosage: 0.1 %
     Dates: start: 20170130
  21. ONDANSETRON [Concomitant]
     Active Substance: ONDANSETRON
     Dosage: 8 MG, BID
     Route: 048
     Dates: start: 20161201

REACTIONS (1)
  - Pancytopenia [Recovered/Resolved]

NARRATIVE: CASE EVENT DATE: 20170719
